FAERS Safety Report 8057490 (Version 3)
Quarter: 2014Q1

REPORT INFORMATION
  Report Type: Spontaneous
  Country: US (occurrence: US)
  Receive Date: 20110727
  Receipt Date: 20140203
  Transmission Date: 20141002
  Serious: Yes (Life-Threatening, Other)
  Sender: FDA-Public Use
  Company Number: US-CELGENEUS-163-21880-11072333

PATIENT
  Sex: Male
  Weight: 79.4 kg

DRUGS (8)
  1. REVLIMID [Suspect]
     Indication: PLASMA CELL MYELOMA
     Dosage: 25 MILLIGRAM
     Route: 048
     Dates: start: 201105
  2. REVLIMID [Suspect]
     Dosage: 18.75 MILLIGRAM
     Route: 048
     Dates: start: 201205
  3. REVLIMID [Suspect]
     Dates: end: 201401
  4. DEXAMETHASONE [Concomitant]
     Indication: PRODUCT USED FOR UNKNOWN INDICATION
     Route: 048
  5. XARELTO [Concomitant]
     Indication: PRODUCT USED FOR UNKNOWN INDICATION
     Route: 048
  6. PRILOSEC [Concomitant]
     Indication: PRODUCT USED FOR UNKNOWN INDICATION
     Route: 065
  7. CALCIUM WITH VITAMIN D [Concomitant]
     Indication: PRODUCT USED FOR UNKNOWN INDICATION
     Route: 065
  8. MULTIVITAMINS [Concomitant]
     Indication: PRODUCT USED FOR UNKNOWN INDICATION
     Route: 065

REACTIONS (5)
  - Thrombosis [Unknown]
  - Heart rate abnormal [Unknown]
  - Thrombosis [Unknown]
  - Thrombosis [Recovered/Resolved]
  - Pulmonary thrombosis [Recovered/Resolved]
